FAERS Safety Report 6535131-3 (Version None)
Quarter: 2010Q1

REPORT INFORMATION
  Report Type: 
  Country: None (occurrence: None)
  Receive Date: 20100113
  Receipt Date: 20100105
  Transmission Date: 20100710
  Serious: Yes (Hospitalization)
  Sender: FDA-Public Use
  Company Number: US-BIOGENIDEC-2009BI042331

PATIENT
  Age: 30 Year
  Sex: Female
  Weight: 81 kg

DRUGS (8)
  1. TYSABRI [Suspect]
     Indication: MULTIPLE SCLEROSIS
     Route: 042
     Dates: start: 20090721
  2. AMANTADINE HCL [Concomitant]
     Indication: FATIGUE
     Route: 048
  3. NEURONTIN [Concomitant]
     Route: 048
     Dates: start: 20090615
  4. TRILEPTAL [Concomitant]
     Indication: BIPOLAR DISORDER
     Route: 048
  5. VENTOLIN [Concomitant]
     Route: 055
  6. MOBIC [Concomitant]
     Indication: PAIN
     Route: 048
     Dates: start: 20091120, end: 20091124
  7. REMERON [Concomitant]
     Indication: SLEEP DISORDER
     Dates: start: 20091001
  8. CLONAZEPAM [Concomitant]
     Indication: ANXIETY

REACTIONS (3)
  - DIZZINESS [None]
  - HYPONATRAEMIA [None]
  - VISION BLURRED [None]
